FAERS Safety Report 22701798 (Version 2)
Quarter: 2024Q1

REPORT INFORMATION
  Report Type: Report from Study
  Country: IL (occurrence: IL)
  Receive Date: 20230713
  Receipt Date: 20240201
  Transmission Date: 20240410
  Serious: Yes (Other)
  Sender: FDA-Public Use
  Company Number: IL-SUN PHARMACEUTICAL INDUSTRIES LTD-2023R1-398043

PATIENT
  Age: 31 Year
  Sex: Female

DRUGS (4)
  1. IMATINIB [Suspect]
     Active Substance: IMATINIB
     Indication: Adenomatous polyposis coli
     Dosage: UNK
     Route: 065
  2. IMATINIB [Suspect]
     Active Substance: IMATINIB
     Indication: Desmoid tumour
  3. SORAFENIB [Suspect]
     Active Substance: SORAFENIB
     Indication: Adenomatous polyposis coli
     Dosage: UNK
     Route: 065
  4. SORAFENIB [Suspect]
     Active Substance: SORAFENIB
     Indication: Desmoid tumour

REACTIONS (1)
  - Small intestinal obstruction [Unknown]
